FAERS Safety Report 10368744 (Version 1)
Quarter: 2014Q1

REPORT INFORMATION
  Report Type: Spontaneous
  Country: US (occurrence: None)
  Receive Date: 20140306
  Receipt Date: 20140306
  Transmission Date: 20141002
  Serious: Yes (Hospitalization, Other)
  Sender: FDA-Public Use
  Company Number: 163-21880-13030567

PATIENT
  Age: 72 Year
  Sex: Female

DRUGS (1)
  1. REVLIMID (LENALIDOMIDE) (10 MILLIGRAM, CAPSULES) [Suspect]
     Indication: MYELODYSPLASTIC SYNDROME
     Dosage: 10 MG, 28 IN 28 D, PO  01/ 2013 - TEMPORARILY INTERRUPTED
     Route: 048
     Dates: start: 201301

REACTIONS (5)
  - Loss of consciousness [None]
  - Platelet count decreased [None]
  - Diarrhoea [None]
  - Blood pressure decreased [None]
  - White blood cell count decreased [None]
